FAERS Safety Report 18963828 (Version 2)
Quarter: 2023Q1

REPORT INFORMATION
  Report Type: Spontaneous
  Country: CA (occurrence: CA)
  Receive Date: 20210303
  Receipt Date: 20230130
  Transmission Date: 20230417
  Serious: Yes (Other)
  Sender: FDA-Public Use
  Company Number: CA-BOEHRINGERINGELHEIM-2021-BI-085925

PATIENT
  Age: 47 Year
  Sex: Female

DRUGS (15)
  1. TIOTROPIUM BROMIDE [Suspect]
     Active Substance: TIOTROPIUM BROMIDE
     Indication: Product used for unknown indication
     Dosage: UNIT DOSE: 2 DOSAGE FORM
  2. SINGULAIR [Suspect]
     Active Substance: MONTELUKAST SODIUM
     Indication: Product used for unknown indication
     Route: 065
  3. VENTOLIN [Suspect]
     Active Substance: ALBUTEROL SULFATE
     Indication: Asthma
     Route: 065
  4. ADVAIR HFA [Suspect]
     Active Substance: FLUTICASONE PROPIONATE\SALMETEROL XINAFOATE
     Indication: Asthma
     Dosage: DOSE: 1 DOSAGE FORM
     Route: 065
  5. FLUTICASONE FUROATE [Suspect]
     Active Substance: FLUTICASONE FUROATE
     Indication: Asthma
     Dosage: DF: SPRAY, METERED DOSE
     Route: 065
  6. MEPOLIZUMAB [Suspect]
     Active Substance: MEPOLIZUMAB
     Indication: Asthma
     Route: 042
  7. MEPOLIZUMAB [Suspect]
     Active Substance: MEPOLIZUMAB
     Indication: Product used for unknown indication
     Route: 042
  8. MEPOLIZUMAB [Suspect]
     Active Substance: MEPOLIZUMAB
     Route: 042
  9. MEPOLIZUMAB [Suspect]
     Active Substance: MEPOLIZUMAB
     Route: 042
  10. MEPOLIZUMAB [Suspect]
     Active Substance: MEPOLIZUMAB
     Route: 058
  11. FLUTICASONE FUROATE [Concomitant]
     Active Substance: FLUTICASONE FUROATE
     Indication: Product used for unknown indication
  12. DOMPERIDONE [Concomitant]
     Active Substance: DOMPERIDONE
     Indication: Product used for unknown indication
  13. HYDROMORPHONE [Concomitant]
     Active Substance: HYDROMORPHONE
  14. MONTELUKAST [Concomitant]
     Active Substance: MONTELUKAST SODIUM
     Indication: Product used for unknown indication
  15. TERBUTALINE SULFATE [Concomitant]
     Active Substance: TERBUTALINE SULFATE
     Indication: Product used for unknown indication

REACTIONS (12)
  - Asthma [Recovered/Resolved]
  - Cough [Recovered/Resolved]
  - Deafness [Recovered/Resolved]
  - Dyspnoea [Recovered/Resolved]
  - Injection site reaction [Recovered/Resolved]
  - Loss of personal independence in daily activities [Recovered/Resolved]
  - Nasal congestion [Recovered/Resolved]
  - Paraesthesia [Recovered/Resolved]
  - Sinusitis [Recovered/Resolved]
  - Sleep disorder [Recovered/Resolved]
  - Therapeutic response unexpected [Recovered/Resolved]
  - Wheezing [Recovered/Resolved]
